FAERS Safety Report 6550990-6 (Version None)
Quarter: 2010Q1

REPORT INFORMATION
  Report Type: 
  Country: None (occurrence: None)
  Receive Date: 20100125
  Receipt Date: 20100114
  Transmission Date: 20100710
  Serious: Yes (Other)
  Sender: FDA-Public Use
  Company Number: GB-AMGEN-US387228

PATIENT
  Sex: Female

DRUGS (9)
  1. ENBREL [Suspect]
     Indication: RHEUMATOID ARTHRITIS
     Dosage: UNKNOWN
     Dates: end: 20091123
  2. ENBREL [Suspect]
     Dosage: UNKNOWN
     Dates: start: 20090101, end: 20091214
  3. ENBREL [Suspect]
     Dosage: UNKNOWN
     Dates: start: 20091226
  4. PREDNISOLONE [Concomitant]
     Indication: POLYMYALGIA RHEUMATICA
     Dosage: INITIALLY 15 MG DAILY, REDUCED TO 4.5 MG WITHIN 1-2 YEARS
  5. PREDNISOLONE [Concomitant]
     Indication: RHEUMATOID ARTHRITIS
  6. SULFASALAZINE [Concomitant]
     Indication: RHEUMATOID ARTHRITIS
     Dosage: UNKNOWN
  7. METHOTREXATE [Concomitant]
     Indication: RHEUMATOID ARTHRITIS
     Dosage: STARTED FROM 7.5 MG DAILY AND GRADUALLY INCREASED TO 20 MG DAILY
     Dates: end: 20040101
  8. METHOTREXATE [Concomitant]
     Dates: start: 20040101, end: 20091123
  9. METHOTREXATE [Concomitant]

REACTIONS (3)
  - CONDITION AGGRAVATED [None]
  - MALIGNANT PERITONEAL NEOPLASM [None]
  - RHEUMATOID ARTHRITIS [None]
